FAERS Safety Report 8854501 (Version 1)
Quarter: 2012Q4

REPORT INFORMATION
  Report Type: 
  Country: ES (occurrence: ES)
  Receive Date: 20121023
  Receipt Date: 20121023
  Transmission Date: 20130627
  Serious: Yes (Hospitalization)
  Sender: FDA-Public Use
  Company Number: ES-PFIZER INC-2012261455

PATIENT
  Age: 70 Year
  Sex: Female

DRUGS (2)
  1. INSPRA [Suspect]
     Indication: HYPERTENSION
     Dosage: UNK
     Route: 048
     Dates: start: 2011, end: 20111217
  2. SEGURIL [Interacting]
     Indication: HYPERTENSION
     Dosage: 40 mg, 2x/day
     Route: 048
     Dates: start: 20111015, end: 20111217

REACTIONS (3)
  - Drug interaction [Recovered/Resolved]
  - Confusional state [Recovered/Resolved]
  - Hyponatraemia [Recovered/Resolved]
